FAERS Safety Report 23201333 (Version 3)
Quarter: 2024Q1

REPORT INFORMATION
  Report Type: Other
  Country: US (occurrence: US)
  Receive Date: 20231118
  Receipt Date: 20240301
  Transmission Date: 20240410
  Serious: Yes (Other)
  Sender: FDA-Public Use
  Company Number: US-TRAVERE-2023TVT00560

PATIENT
  Age: 40 Year
  Sex: Female

DRUGS (19)
  1. FILSPARI [Suspect]
     Active Substance: SPARSENTAN
     Indication: Haematuria
     Route: 048
     Dates: start: 20230912
  2. FILSPARI [Suspect]
     Active Substance: SPARSENTAN
     Indication: IgA nephropathy
     Route: 048
  3. METOPROLOL SUCCINATE [Concomitant]
     Active Substance: METOPROLOL SUCCINATE
  4. VITAMINS [Concomitant]
     Active Substance: VITAMINS
  5. PERCOCET [Concomitant]
     Active Substance: ACETAMINOPHEN\OXYCODONE HYDROCHLORIDE
  6. DELTASONE [Concomitant]
     Active Substance: PREDNISONE
  7. TAVNEOS [Concomitant]
     Active Substance: AVACOPAN
  8. ROSUVASTATIN CALCIUM [Concomitant]
     Active Substance: ROSUVASTATIN CALCIUM
  9. GABAPENTIN [Concomitant]
     Active Substance: GABAPENTIN
  10. ALPRAZOLAM [Concomitant]
     Active Substance: ALPRAZOLAM
  11. METOPROLOL SUCCINATE [Concomitant]
     Active Substance: METOPROLOL SUCCINATE
  12. ONDANSETRON [Concomitant]
     Active Substance: ONDANSETRON
  13. ZOLOFT [Concomitant]
     Active Substance: SERTRALINE HYDROCHLORIDE
  14. ALDACTONE [Concomitant]
     Active Substance: SPIRONOLACTONE
  15. BUMEX [Concomitant]
     Active Substance: BUMETANIDE
  16. BUSPAR [Concomitant]
     Active Substance: BUSPIRONE HYDROCHLORIDE
  17. DAPSONE [Concomitant]
     Active Substance: DAPSONE
  18. DIAZEPAM [Concomitant]
     Active Substance: DIAZEPAM
  19. COMPAZINE [Concomitant]
     Active Substance: PROCHLORPERAZINE MALEATE

REACTIONS (2)
  - Arthropathy [Unknown]
  - Drug effect less than expected [Unknown]
